FAERS Safety Report 15507339 (Version 2)
Quarter: 2018Q4

REPORT INFORMATION
  Report Type: Report from Study
  Country: None (occurrence: BR)
  Receive Date: 20181016
  Receipt Date: 20181023
  Transmission Date: 20190205
  Serious: Yes (Hospitalization, Other)
  Sender: FDA-Public Use
  Company Number: BR-ABBVIE-18K-020-2318356-00

PATIENT
  Age: 54 Year
  Sex: Female
  Weight: 62 kg

DRUGS (3)
  1. HUMIRA [Suspect]
     Active Substance: ADALIMUMAB
     Indication: CROHN^S DISEASE
     Dosage: LOADING DOSE - WEEK 0
     Route: 058
     Dates: start: 20160704, end: 20160704
  2. HUMIRA [Suspect]
     Active Substance: ADALIMUMAB
     Dosage: LOADING DOSE - WEEK 2
     Route: 058
     Dates: start: 201607, end: 201607
  3. HUMIRA [Suspect]
     Active Substance: ADALIMUMAB
     Route: 058
     Dates: start: 2016

REACTIONS (19)
  - Drug dependence [Unknown]
  - Diverticulitis [Recovering/Resolving]
  - Bradycardia [Recovering/Resolving]
  - Haemorrhage [Recovering/Resolving]
  - Hypertension [Recovering/Resolving]
  - Pancreatic disorder [Recovering/Resolving]
  - Renal disorder [Recovering/Resolving]
  - Insomnia [Recovering/Resolving]
  - Drug ineffective [Recovering/Resolving]
  - Immunodeficiency [Unknown]
  - Heart rate increased [Recovering/Resolving]
  - Bacterial test positive [Recovering/Resolving]
  - Crohn^s disease [Recovering/Resolving]
  - Feeding disorder [Unknown]
  - Lung infiltration [Recovering/Resolving]
  - Sinusitis [Unknown]
  - Weight increased [Unknown]
  - Diabetes mellitus [Recovering/Resolving]
  - Nosocomial infection [Recovering/Resolving]

NARRATIVE: CASE EVENT DATE: 20180329
